FAERS Safety Report 7538193-X (Version None)
Quarter: 2011Q2

REPORT INFORMATION
  Report Type: 
  Country: None (occurrence: None)
  Receive Date: 20110609
  Receipt Date: 20020430
  Transmission Date: 20111010
  Serious: Yes (Death, Other)
  Sender: FDA-Public Use
  Company Number: PHBS2002CA04384

PATIENT
  Sex: Male

DRUGS (3)
  1. CLOZAPINE [Suspect]
     Indication: SCHIZOPHRENIA
     Dosage: 200 MG, BID
     Route: 048
     Dates: start: 19951201
  2. CLONAZEPAM [Concomitant]
     Dosage: .5 MG, BID
     Route: 065
  3. HALOPERIDOL [Concomitant]
     Dosage: 4 MG, DAILY
     Route: 065

REACTIONS (1)
  - PNEUMONIA [None]
